FAERS Safety Report 14584503 (Version 1)
Quarter: 2018Q1

REPORT INFORMATION
  Report Type: Report from Study
  Country: None (occurrence: CA)
  Receive Date: 20180301
  Receipt Date: 20180301
  Transmission Date: 20180509
  Serious: Yes (Hospitalization)
  Sender: FDA-Public Use
  Company Number: CA-ABBVIE-18K-028-2248132-00

PATIENT
  Age: 67 Year
  Sex: Female
  Weight: 61.29 kg

DRUGS (1)
  1. HUMIRA [Suspect]
     Active Substance: ADALIMUMAB
     Indication: RHEUMATOID ARTHRITIS
     Route: 058
     Dates: start: 20151207

REACTIONS (9)
  - Fracture nonunion [Unknown]
  - Back pain [Unknown]
  - Wound infection staphylococcal [Unknown]
  - Osteomyelitis viral [Not Recovered/Not Resolved]
  - Intervertebral discitis [Unknown]
  - Pneumonia staphylococcal [Unknown]
  - Humerus fracture [Not Recovered/Not Resolved]
  - Subcutaneous abscess [Unknown]
  - Osteitis [Unknown]

NARRATIVE: CASE EVENT DATE: 20171226
